FAERS Safety Report 7868100-1 (Version None)
Quarter: 2011Q4

REPORT INFORMATION
  Report Type: 
  Country: None (occurrence: None)
  Receive Date: 20111028
  Receipt Date: 20111026
  Transmission Date: 20120403
  Serious: Yes (Other)
  Sender: FDA-Public Use
  Company Number: FR-PFIZER INC-2011261879

PATIENT
  Age: 74 Year
  Sex: Male

DRUGS (4)
  1. LYRICA [Suspect]
     Dosage: 25 MG, 2X/DAY
  2. SULPIRIDE [Concomitant]
  3. CLONAZEPAM [Concomitant]
  4. LYRICA [Suspect]
     Dosage: 25 MG 5/DAY

REACTIONS (1)
  - BRADYCARDIA [None]
